FAERS Safety Report 20003684 (Version 1)
Quarter: 2021Q4

REPORT INFORMATION
  Report Type: Spontaneous
  Country: HU (occurrence: HU)
  Receive Date: 20211027
  Receipt Date: 20211027
  Transmission Date: 20220303
  Serious: Yes (Other)
  Sender: FDA-Public Use
  Company Number: HU-BOEHRINGERINGELHEIM-2021-BI-134393

PATIENT
  Age: 57 Year
  Sex: Female

DRUGS (3)
  1. NINTEDANIB [Suspect]
     Active Substance: NINTEDANIB
     Indication: Lung adenocarcinoma
     Dates: start: 20200125, end: 202004
  2. NINTEDANIB [Suspect]
     Active Substance: NINTEDANIB
     Dosage: REDUCED DOSE
     Dates: start: 202004, end: 202009
  3. DOCETAXEL [Concomitant]
     Active Substance: DOCETAXEL
     Indication: Lung adenocarcinoma
     Dosage: 4 CYCLES
     Dates: start: 20200125

REACTIONS (2)
  - Malignant neoplasm progression [Unknown]
  - Diarrhoea [Recovered/Resolved]

NARRATIVE: CASE EVENT DATE: 20200101
